FAERS Safety Report 9016410 (Version 8)
Quarter: 2014Q3

REPORT INFORMATION
  Report Type: Spontaneous
  Country: US (occurrence: US)
  Receive Date: 20130116
  Receipt Date: 20140917
  Transmission Date: 20150326
  Serious: Yes (Other)
  Sender: FDA-Public Use
  Company Number: US-GLAXOSMITHKLINE-A0980996A

PATIENT
  Age: 55 Year
  Sex: Female

DRUGS (3)
  1. TRACLEER [Suspect]
     Active Substance: BOSENTAN\BOSENTAN MONOHYDRATE
     Indication: PRODUCT USED FOR UNKNOWN INDICATION
     Dosage: 125MG TWICE PER DAY
  2. LETAIRIS [Suspect]
     Active Substance: AMBRISENTAN
     Indication: PRODUCT USED FOR UNKNOWN INDICATION
     Route: 065
     Dates: start: 201406
  3. FLOLAN [Suspect]
     Active Substance: EPOPROSTENOL SODIUM
     Indication: PULMONARY ARTERIAL HYPERTENSION
     Dosage: 45.6NGKM CONTINUOUS
     Route: 042
     Dates: start: 20110930

REACTIONS (23)
  - Decreased appetite [Unknown]
  - Weight decreased [Unknown]
  - Sinus disorder [Unknown]
  - Malaise [Unknown]
  - Dysarthria [Unknown]
  - Pain in extremity [Unknown]
  - Rash pustular [Unknown]
  - Dyspnoea [Unknown]
  - Catheterisation cardiac [Unknown]
  - Rash pruritic [Unknown]
  - Loss of consciousness [Unknown]
  - Hypoaesthesia oral [Unknown]
  - Hyperhidrosis [Unknown]
  - Diarrhoea [Unknown]
  - Toothache [Unknown]
  - Somnolence [Unknown]
  - Syncope [Unknown]
  - Nausea [Unknown]
  - Abdominal pain upper [Unknown]
  - Fatigue [Unknown]
  - Rash [Unknown]
  - Hot flush [Unknown]
  - Urinary incontinence [Unknown]

NARRATIVE: CASE EVENT DATE: 201406
